FAERS Safety Report 8147636 (Version 3)
Quarter: 2013Q1

REPORT INFORMATION
  Report Type: Spontaneous
  Country: US (occurrence: US)
  Receive Date: 20110922
  Receipt Date: 20130215
  Transmission Date: 20140127
  Serious: Yes (Other)
  Sender: FDA-Public Use
  Company Number: US-ASTRAZENECA-2011SE12594

PATIENT
  Age: 676 Month
  Sex: Male
  Weight: 91.2 kg

DRUGS (18)
  1. SEROQUEL [Suspect]
     Route: 048
     Dates: start: 20070123
  2. ALPRAZOLAM ER [Concomitant]
     Dosage: 0.5 TO 1 MG
     Dates: start: 20061222
  3. DEPAKOTE [Concomitant]
     Dates: start: 20061222
  4. LISINOPRIL [Concomitant]
     Indication: BLOOD PRESSURE
     Dates: start: 20061222
  5. LISINOPRIL [Concomitant]
     Indication: BLOOD PRESSURE
     Dates: start: 20091113
  6. PREVACID [Concomitant]
     Dates: start: 20060922
  7. AZITHROMYCIN [Concomitant]
     Dates: start: 20061228
  8. HYDROCO/ACETAMINOP [Concomitant]
     Dosage: 5-500 MG
     Dates: start: 20070109
  9. LIPITOR [Concomitant]
     Dates: start: 20070115
  10. NEXIUM [Concomitant]
     Dates: start: 20070129
  11. TRAMA-DOL HCL [Concomitant]
     Dates: start: 20070308
  12. OXYCODO/ACETAMINO [Concomitant]
     Dosage: 5-325 MG
     Dates: start: 20070516
  13. NEURONTIN [Concomitant]
     Dates: start: 20091113
  14. OXYCONTIN [Concomitant]
     Dates: start: 20091113
  15. PRAVASTATIN [Concomitant]
     Dates: start: 20091113
  16. AMOXICILLIN [Concomitant]
     Dates: start: 20110617
  17. BENZONATATE [Concomitant]
     Dates: start: 20110608
  18. PROMETHAZINE [Concomitant]
     Dates: start: 20110608

REACTIONS (3)
  - Pancreatitis [Unknown]
  - Diabetic coma [Unknown]
  - Type 2 diabetes mellitus [Unknown]
